FAERS Safety Report 21828446 (Version 1)
Quarter: 2023Q1

REPORT INFORMATION
  Report Type: Spontaneous
  Country: ES (occurrence: None)
  Receive Date: 20230106
  Receipt Date: 20230106
  Transmission Date: 20230418
  Serious: Yes (Life-Threatening)
  Sender: FDA-Public Use
  Company Number: 2023A001434

PATIENT
  Age: 73 Year
  Sex: Male

DRUGS (5)
  1. OMEPRAZOLE [Suspect]
     Active Substance: OMEPRAZOLE
     Indication: Diabetes mellitus
     Dosage: 20.0 MG A-DE
     Route: 048
     Dates: start: 20080227
  2. TRINISPRAY [Concomitant]
     Indication: Myocardial ischaemia
     Dosage: 0.4 MG DECOCEN
     Dates: start: 20121029
  3. FENOFIBRATE [Concomitant]
     Active Substance: FENOFIBRATE
     Indication: Type V hyperlipidaemia
     Dosage: 250.0 MG CE
     Dates: start: 20140807
  4. ISOSORBIDE MONONITRATE [Concomitant]
     Active Substance: ISOSORBIDE MONONITRATE
     Indication: Myocardial ischaemia
     Dosage: 50.0 MG CO
     Dates: start: 20071129
  5. ATENOLOL [Concomitant]
     Active Substance: ATENOLOL
     Indication: Myocardial ischaemia
     Dosage: 75.0 MG DE
     Dates: start: 20071220

REACTIONS (1)
  - Hypomagnesaemia [Recovering/Resolving]

NARRATIVE: CASE EVENT DATE: 20181111
